FAERS Safety Report 8768254 (Version 1)
Quarter: 2012Q4

REPORT INFORMATION
  Report Type: Report from Study
  Country: JP (occurrence: JP)
  Receive Date: 20120904
  Receipt Date: 20120904
  Transmission Date: 20130627
  Serious: Yes (Other)
  Sender: FDA-Public Use
  Company Number: JP-009507513-2012SP027972

PATIENT

DRUGS (17)
  1. PEGINTRON [Suspect]
     Indication: HEPATITIS C
     Dosage: 1.5 ?g/kg, QW
     Route: 058
     Dates: start: 20120222, end: 20120229
  2. PEGINTRON [Suspect]
     Dosage: 1.3 ?g/kg, QW
     Route: 058
     Dates: start: 20120301, end: 20120307
  3. PEGINTRON [Suspect]
     Dosage: 1.0 ?g/kg, QW
     Route: 058
     Dates: start: 20120308
  4. PEGINTRON [Suspect]
     Dosage: 1.5 ?g/kg, QW
     Route: 058
  5. PEGINTRON [Suspect]
     Dosage: 1.0 Microgram per kilogram, qw
     Route: 058
     Dates: end: 20120719
  6. REBETOL [Suspect]
     Indication: HEPATITIS C
     Dosage: 600 mg, QD
     Route: 048
     Dates: start: 20120202, end: 20120307
  7. REBETOL [Suspect]
     Dosage: UNK
     Route: 048
     Dates: start: 20120308
  8. REBETOL [Suspect]
     Dosage: 400 mg, QD
     Route: 048
  9. REBETOL [Suspect]
     Dosage: 600 UNK, UNK
     Route: 048
     Dates: start: 20120511
  10. REBETOL [Suspect]
     Dosage: 800 UNK, UNK
     Route: 048
     Dates: start: 20120628, end: 20120725
  11. TELAVIC [Suspect]
     Indication: HEPATITIS C
     Dosage: Dose: 2250 mg
     Route: 048
     Dates: start: 20120202, end: 20120222
  12. TELAVIC [Suspect]
     Dosage: Dose: 1500 mg
     Route: 048
     Dates: start: 20120223, end: 20120314
  13. TELAVIC [Suspect]
     Dosage: 500 mg, QD
     Route: 048
     Dates: start: 20120315
  14. TELAVIC [Suspect]
     Dosage: Dose: 1000mg
     Route: 048
     Dates: start: 20120329
  15. TELAVIC [Suspect]
     Dosage: Dose: 1500 mg
     Route: 048
     Dates: start: 20120405
  16. MEILAX [Concomitant]
     Dosage: FORMULATION: POR
     Route: 048
     Dates: start: 20120322
  17. [COMPOSITION UNSPECIFIED] [Concomitant]
     Dosage: Formulation:por
     Route: 048
     Dates: start: 20120322

REACTIONS (1)
  - Depression [Not Recovered/Not Resolved]
